FAERS Safety Report 11693877 (Version 1)
Quarter: 2015Q4

REPORT INFORMATION
  Report Type: Report from Study
  Country: TH (occurrence: TH)
  Receive Date: 20151103
  Receipt Date: 20151103
  Transmission Date: 20160304
  Serious: Yes (Other)
  Sender: FDA-Public Use
  Company Number: PHHY2012TH105178

PATIENT
  Sex: Male

DRUGS (2)
  1. GLIVEC [Suspect]
     Active Substance: IMATINIB MESYLATE
     Dosage: 800 MG, QD
     Route: 065
     Dates: start: 20121106
  2. GLIVEC [Suspect]
     Active Substance: IMATINIB MESYLATE
     Indication: GASTROINTESTINAL STROMAL TUMOUR
     Dosage: 400 MG, UNK
     Route: 065
     Dates: start: 20080827

REACTIONS (8)
  - Localised oedema [Unknown]
  - Hepatic neoplasm [Unknown]
  - Malignant neoplasm progression [Unknown]
  - Metastases to liver [Unknown]
  - Hepatic mass [Unknown]
  - Gastrointestinal stromal tumour [Unknown]
  - No therapeutic response [Unknown]
  - Flatulence [Unknown]
